FAERS Safety Report 14688257 (Version 12)
Quarter: 2019Q1

REPORT INFORMATION
  Report Type: Report from Study
  Country: None (occurrence: US)
  Receive Date: 20180328
  Receipt Date: 20190102
  Transmission Date: 20190417
  Serious: Yes (Hospitalization, Other)
  Sender: FDA-Public Use
  Company Number: US-ABBVIE-17K-163-2198319-00

PATIENT
  Age: 60 Year
  Sex: Female
  Weight: 103.97 kg

DRUGS (6)
  1. HUMIRA [Suspect]
     Active Substance: ADALIMUMAB
     Indication: RHEUMATOID ARTHRITIS
     Route: 058
     Dates: start: 2017, end: 2018
  2. AMBIEN [Concomitant]
     Active Substance: ZOLPIDEM TARTRATE
     Indication: SLEEP DISORDER
  3. NAPROXEN SODIUM. [Suspect]
     Active Substance: NAPROXEN SODIUM
     Indication: PRODUCT USED FOR UNKNOWN INDICATION
     Route: 065
  4. SEROQUEL [Concomitant]
     Active Substance: QUETIAPINE FUMARATE
     Indication: SLEEP DISORDER
  5. WELLBUTRIN [Concomitant]
     Active Substance: BUPROPION HYDROCHLORIDE
     Indication: PRODUCT USED FOR UNKNOWN INDICATION
  6. TRAZODONE [Concomitant]
     Active Substance: TRAZODONE HYDROCHLORIDE
     Indication: SLEEP DISORDER

REACTIONS (52)
  - Pain [Unknown]
  - Dermal cyst [Unknown]
  - Loss of consciousness [Recovered/Resolved]
  - Anxiety [Recovered/Resolved]
  - Post procedural complication [Unknown]
  - Back pain [Unknown]
  - Injection site pain [Unknown]
  - Peripheral swelling [Unknown]
  - Skin induration [Recovering/Resolving]
  - Nail operation [Unknown]
  - Musculoskeletal disorder [Unknown]
  - Sensitivity to weather change [Unknown]
  - Swollen tongue [Unknown]
  - Blood potassium decreased [Unknown]
  - Finger deformity [Unknown]
  - Fall [Recovered/Resolved]
  - Fall [Recovering/Resolving]
  - Skin mass [Recovering/Resolving]
  - Head injury [Recovering/Resolving]
  - Peripheral nerve injury [Unknown]
  - Sinus disorder [Unknown]
  - Visual impairment [Not Recovered/Not Resolved]
  - Depression [Not Recovered/Not Resolved]
  - Nasal abscess [Unknown]
  - Malaise [Unknown]
  - Cyst [Recovered/Resolved]
  - Unresponsive to stimuli [Unknown]
  - Rubber sensitivity [Unknown]
  - Contusion [Recovering/Resolving]
  - Seasonal allergy [Unknown]
  - Sciatica [Unknown]
  - Pain in extremity [Unknown]
  - Furuncle [Unknown]
  - Oropharyngeal pain [Unknown]
  - Nausea [Unknown]
  - Depression [Recovered/Resolved]
  - Nephritis [Unknown]
  - Dizziness [Unknown]
  - Nasal polyps [Unknown]
  - Thrombosis [Unknown]
  - Rash [Unknown]
  - Bone pain [Unknown]
  - Hypertension [Not Recovered/Not Resolved]
  - Anxiety [Not Recovered/Not Resolved]
  - Furuncle [Recovering/Resolving]
  - Insomnia [Unknown]
  - Postoperative wound infection [Recovering/Resolving]
  - Arthropod bite [Unknown]
  - Decreased appetite [Unknown]
  - Hypersensitivity [Unknown]
  - Rheumatoid arthritis [Unknown]
  - Subcutaneous abscess [Unknown]

NARRATIVE: CASE EVENT DATE: 2017
